FAERS Safety Report 19708105 (Version 1)
Quarter: 2021Q3

REPORT INFORMATION
  Report Type: Spontaneous
  Country: IT (occurrence: IT)
  Receive Date: 20210817
  Receipt Date: 20210817
  Transmission Date: 20211014
  Serious: Yes (Life-Threatening)
  Sender: FDA-Public Use
  Company Number: IT-ACCORD-235231

PATIENT
  Age: 65 Year
  Sex: Female
  Weight: 88 kg

DRUGS (3)
  1. CARBOPLATIN. [Suspect]
     Active Substance: CARBOPLATIN
     Indication: OVARIAN CANCER
     Route: 042
     Dates: start: 20210721, end: 20210721
  2. ZOFRAN [Concomitant]
     Active Substance: ONDANSETRON HYDROCHLORIDE
     Indication: OVARIAN CANCER
     Route: 042
     Dates: start: 20210721, end: 20210721
  3. DECADRON [Concomitant]
     Active Substance: DEXAMETHASONE
     Indication: OVARIAN CANCER
     Route: 042
     Dates: start: 20210721, end: 20210721

REACTIONS (3)
  - Chest discomfort [Recovered/Resolved]
  - Dyspnoea [Recovered/Resolved]
  - Erythema [Recovered/Resolved]

NARRATIVE: CASE EVENT DATE: 20210721
